FAERS Safety Report 24407788 (Version 2)
Quarter: 2024Q4

REPORT INFORMATION
  Report Type: Spontaneous
  Country: JP (occurrence: JP)
  Receive Date: 20241007
  Receipt Date: 20241029
  Transmission Date: 20250115
  Serious: Yes (Other)
  Sender: TEVA
  Company Number: JP-TEVA-VS-3249775

PATIENT
  Age: 64 Year
  Sex: Male

DRUGS (1)
  1. LANSOPRAZOLE [Suspect]
     Active Substance: LANSOPRAZOLE
     Indication: Gastrooesophageal reflux disease
     Route: 065

REACTIONS (2)
  - Diarrhoea [Recovered/Resolved]
  - Colitis microscopic [Recovered/Resolved]
